FAERS Safety Report 4543127-6 (Version None)
Quarter: 2004Q4

REPORT INFORMATION
  Report Type: 
  Country: None (occurrence: None)
  Receive Date: 20041229
  Receipt Date: 20041216
  Transmission Date: 20050328
  Serious: No
  Sender: FDA-Public Use
  Company Number: F02200400083

PATIENT
  Age: 71 Year
  Sex: Male

DRUGS (4)
  1. XATRAL (ALFUZOSIN)TABLET PR 10 MG [Suspect]
     Indication: BENIGN PROSTATIC HYPERPLASIA
     Dosage: 10 MG OD
     Route: 048
     Dates: start: 20001219
  2. AVLOCARDYL (PROPANOLOL) [Concomitant]
  3. ASPEGIC 1000 [Concomitant]
  4. LANSOPRAZOLE [Concomitant]

REACTIONS (1)
  - PROSTATE CANCER [None]
